FAERS Safety Report 7522508-2 (Version None)
Quarter: 2011Q2

REPORT INFORMATION
  Report Type: 
  Country: None (occurrence: None)
  Receive Date: 20110603
  Receipt Date: 20081001
  Transmission Date: 20111010
  Serious: Yes (Hospitalization, Other)
  Sender: FDA-Public Use
  Company Number: US-BAYER-201039744NA

PATIENT
  Age: 56 Year
  Sex: Male
  Weight: 107 kg

DRUGS (29)
  1. TRASYLOL [Suspect]
     Indication: ULTRASOUND DOPPLER
  2. VERSED [Concomitant]
     Dosage: 2 MG
     Route: 042
     Dates: start: 20051209, end: 20051209
  3. MILRINONE [Concomitant]
     Dosage: 3 MG
     Route: 042
     Dates: start: 20051209, end: 20051209
  4. RED BLOOD CELLS [Concomitant]
     Dosage: 2 UNITS
     Route: 042
     Dates: start: 20051210, end: 20051211
  5. TRASYLOL [Suspect]
     Indication: MEDICAL DEVICE REMOVAL
  6. STARLIX [Concomitant]
     Dosage: 120 MG
     Route: 048
  7. HEPARIN [Concomitant]
     Dosage: 1000UNITS/HR
     Route: 042
     Dates: start: 20051209, end: 20051209
  8. ANCEF [Concomitant]
     Dosage: 2 GRAM
     Route: 042
     Dates: start: 20051209, end: 20051209
  9. FENTANYL [Concomitant]
     Dosage: 1500MCG
     Route: 042
     Dates: start: 20051209, end: 20051209
  10. SODIUM BICARBONATE [Concomitant]
     Dosage: 50 ML
     Route: 042
     Dates: start: 20051209, end: 20051209
  11. KAYEXALATE [Concomitant]
     Dosage: 10 MG
     Route: 048
     Dates: start: 20050101
  12. HYDRALAZINE HCL [Concomitant]
     Dosage: 10 MG
     Route: 048
  13. CATAPRES-TTS-1 [Concomitant]
     Route: 048
  14. TRASYLOL [Suspect]
     Indication: CENTRAL VENOUS CATHETERISATION
     Dosage: 200ML FOLLOWED BY 50ML/HR INFUSION
     Route: 042
     Dates: start: 20051209, end: 20051209
  15. ZOCOR [Concomitant]
     Dosage: 40 MG
     Route: 048
  16. LASIX [Concomitant]
     Dosage: 40 MG
     Route: 048
     Dates: start: 20050201, end: 20050101
  17. LOTENSIN [Suspect]
     Dosage: 10/20MG
     Route: 048
     Dates: start: 20000101, end: 20050101
  18. LEVOPHED [Concomitant]
     Dosage: UNK
     Route: 042
     Dates: start: 20051209, end: 20051211
  19. COREG [Concomitant]
     Dosage: 25 MG
     Route: 048
     Dates: start: 20030201
  20. INTEGRILIN [Concomitant]
     Dosage: 17ML/HR
     Route: 042
     Dates: start: 20051209, end: 20051209
  21. TRASYLOL [Suspect]
     Indication: CORONARY ARTERY BYPASS
     Dosage: 1 ML INITIAL TEST DOSE
     Route: 042
     Dates: start: 20051209, end: 20051209
  22. NOVOLIN 70/30 [Concomitant]
     Dosage: 65 UNITS IN MORNING ,46 UNITS IN EVENING
     Route: 058
  23. ZETIA [Concomitant]
     Dosage: 10 MG
     Route: 048
  24. PLAVIX [Concomitant]
     Dosage: 75 MG
     Route: 048
     Dates: start: 20000101, end: 20051123
  25. NITROGLYCERIN [Concomitant]
     Dosage: 80MICROGRAM/MINUTE
     Route: 042
     Dates: start: 20051209, end: 20051209
  26. ALBUMIN (HUMAN) [Concomitant]
     Dosage: 100 ML
     Route: 042
     Dates: start: 20051209, end: 20051209
  27. DIPRIVAN [Concomitant]
     Route: 042
  28. LANTUS [Concomitant]
     Dosage: 70 UNITS AT BEDTIME
     Route: 058
  29. ACETYLSALICYLIC ACID SRT [Concomitant]
     Dosage: 325 MG
     Route: 048
     Dates: start: 19950101, end: 20051122

REACTIONS (6)
  - PAIN [None]
  - ANXIETY [None]
  - RENAL FAILURE [None]
  - EMOTIONAL DISTRESS [None]
  - UNEVALUABLE EVENT [None]
  - INJURY [None]
